FAERS Safety Report 5000781-2 (Version None)
Quarter: 2006Q2

REPORT INFORMATION
  Report Type: 
  Country: None (occurrence: None)
  Receive Date: 20060512
  Receipt Date: 20051005
  Transmission Date: 20061013
  Serious: Yes (Hospitalization, Other)
  Sender: FDA-Public Use
  Company Number: US-MERCK-0510USA03824

PATIENT
  Age: 69 Year
  Sex: Female
  Weight: 89 kg

DRUGS (3)
  1. VIOXX [Suspect]
     Indication: ARTHRALGIA
     Route: 048
     Dates: start: 20010319, end: 20040901
  2. VIOXX [Suspect]
     Route: 048
     Dates: start: 20040909, end: 20040911
  3. VIOXX [Suspect]
     Route: 048
     Dates: start: 20010319, end: 20040901

REACTIONS (56)
  - ABASIA [None]
  - ABDOMINAL PAIN [None]
  - ADVERSE DRUG REACTION [None]
  - ARTHRALGIA [None]
  - ASTHENIA [None]
  - BACK INJURY [None]
  - BREAST CANCER [None]
  - BRONCHITIS ACUTE [None]
  - BUNDLE BRANCH BLOCK RIGHT [None]
  - CARDIAC FAILURE CONGESTIVE [None]
  - CARDIOMEGALY [None]
  - CARDIOVASCULAR DECONDITIONING [None]
  - CEREBROVASCULAR ACCIDENT [None]
  - CONFUSIONAL STATE [None]
  - CONTUSION [None]
  - CORONARY ARTERY DISEASE [None]
  - DEHYDRATION [None]
  - DIZZINESS [None]
  - DYSPEPSIA [None]
  - DYSPNOEA EXACERBATED [None]
  - DYSPNOEA EXERTIONAL [None]
  - ENTEROCOCCAL INFECTION [None]
  - FLUSHING [None]
  - GAIT DISTURBANCE [None]
  - HEADACHE [None]
  - HYPERHIDROSIS [None]
  - HYPERLIPIDAEMIA [None]
  - HYPERTENSION [None]
  - HYPERTENSIVE HEART DISEASE [None]
  - HYPOTHYROIDISM [None]
  - INCISION SITE CELLULITIS [None]
  - JOINT SWELLING [None]
  - LOBAR PNEUMONIA [None]
  - LOSS OF CONSCIOUSNESS [None]
  - MALAISE [None]
  - MEMORY IMPAIRMENT [None]
  - MENTAL STATUS CHANGES [None]
  - NECK INJURY [None]
  - OCCULT BLOOD [None]
  - OEDEMA PERIPHERAL [None]
  - OSTEOARTHRITIS [None]
  - PAIN IN EXTREMITY [None]
  - PALPITATIONS [None]
  - PERSONALITY CHANGE [None]
  - PHARYNGITIS [None]
  - PNEUMONIA [None]
  - POLLAKIURIA [None]
  - PRESCRIBED OVERDOSE [None]
  - ROAD TRAFFIC ACCIDENT [None]
  - SILENT MYOCARDIAL INFARCTION [None]
  - STRESS [None]
  - SUPRAVENTRICULAR TACHYCARDIA [None]
  - SYNCOPE [None]
  - THYROID NEOPLASM [None]
  - VISUAL DISTURBANCE [None]
  - WEIGHT INCREASED [None]
